FAERS Safety Report 16450252 (Version 1)
Quarter: 2019Q2

REPORT INFORMATION
  Report Type: Spontaneous
  Country: US (occurrence: US)
  Receive Date: 20190619
  Receipt Date: 20190619
  Transmission Date: 20190711
  Serious: No
  Sender: FDA-Public Use
  Company Number: US-STRIDES ARCOLAB LIMITED-2019SP004636

PATIENT
  Age: 7 Year
  Sex: Male
  Weight: 23 kg

DRUGS (4)
  1. AZITHROMYCIN ANHYDROUS. [Concomitant]
     Active Substance: AZITHROMYCIN ANHYDROUS
     Indication: NEUROPSYCHIATRIC SYNDROME
     Dosage: 250 MG, DAILY
     Route: 065
  2. IBUPROFEN. [Suspect]
     Active Substance: IBUPROFEN
     Indication: NEUROPSYCHIATRIC SYNDROME
     Dosage: 200 MG, DAILY
     Route: 065
  3. NAPROXEN. [Suspect]
     Active Substance: NAPROXEN
     Indication: NEUROPSYCHIATRIC SYNDROME
     Dosage: UNK
     Route: 065
  4. GUANFACINE. [Suspect]
     Active Substance: GUANFACINE
     Indication: NEUROPSYCHIATRIC SYMPTOMS
     Dosage: 2 MG, DAILY
     Route: 065

REACTIONS (2)
  - Off label use [Unknown]
  - Hepatic enzyme increased [Unknown]
